FAERS Safety Report 25633232 (Version 1)
Quarter: 2025Q3

REPORT INFORMATION
  Report Type: Spontaneous
  Country: US (occurrence: None)
  Receive Date: 20250731
  Receipt Date: 20250731
  Transmission Date: 20251020
  Serious: Yes (Hospitalization)
  Sender: FDA-CTU
  Company Number: None

PATIENT
  Age: 74 Year
  Sex: Male
  Weight: 89.5 kg

DRUGS (1)
  1. TALVEY [Suspect]
     Active Substance: TALQUETAMAB-TGVS
     Indication: Plasma cell myeloma
     Route: 058
     Dates: start: 20250725, end: 20250726

REACTIONS (5)
  - Hypotension [None]
  - Hypoxia [None]
  - Atrial fibrillation [None]
  - Cytokine release syndrome [None]
  - Masked fever [None]

NARRATIVE: CASE EVENT DATE: 20250725
